FAERS Safety Report 6666425-9 (Version None)
Quarter: 2010Q1

REPORT INFORMATION
  Report Type: 
  Country: None (occurrence: None)
  Receive Date: 20100331
  Receipt Date: 20100322
  Transmission Date: 20100710
  Serious: Yes (Other)
  Sender: FDA-Public Use
  Company Number: SPV1-2010-00537

PATIENT
  Age: 41 Year
  Sex: Male
  Weight: 87.5 kg

DRUGS (2)
  1. CARBATROL [Suspect]
     Indication: EPILEPSY
     Dosage: SIX 200MG CAPSULES DAILY, ORAL; NINE 200MG CAPSULES DAILY,
     Route: 048
     Dates: start: 20080101, end: 20100301
  2. CARBATROL [Suspect]
     Indication: EPILEPSY
     Dosage: SIX 200MG CAPSULES DAILY, ORAL; NINE 200MG CAPSULES DAILY,
     Route: 048
     Dates: start: 20100301

REACTIONS (1)
  - CONVULSION [None]
